FAERS Safety Report 15249981 (Version 1)
Quarter: 2018Q3

REPORT INFORMATION
  Report Type: Spontaneous
  Country: US (occurrence: US)
  Receive Date: 20180716
  Receipt Date: 20180716
  Transmission Date: 20181010
  Serious: No
  Sender: FDA-Public Use
  Company Number: None

PATIENT
  Age: 45 Year
  Sex: Female
  Weight: 119.25 kg

DRUGS (8)
  1. HCTZ [Concomitant]
     Active Substance: HYDROCHLOROTHIAZIDE
  2. MVI [Concomitant]
     Active Substance: VITAMINS
  3. SPRIX [Suspect]
     Active Substance: KETOROLAC TROMETHAMINE
     Indication: NASAL INFLAMMATION
     Dosage: ?          QUANTITY:1 SPRAY(S);?
     Route: 045
  4. VALSARTAN. [Concomitant]
     Active Substance: VALSARTAN
  5. KRILL OIL [Concomitant]
     Active Substance: DIETARY SUPPLEMENT
  6. METOPROLOL TAR [Concomitant]
     Active Substance: METOPROLOL TARTRATE
  7. POTASSIUM [Concomitant]
     Active Substance: POTASSIUM
  8. ASPREGA (PROBIOTIC) [Concomitant]

REACTIONS (3)
  - Nasal inflammation [None]
  - Sinus pain [None]
  - Skin abrasion [None]

NARRATIVE: CASE EVENT DATE: 20180605
